FAERS Safety Report 9396109 (Version 1)
Quarter: 2013Q3

REPORT INFORMATION
  Report Type: Spontaneous
  Country: US (occurrence: US)
  Receive Date: 20130711
  Receipt Date: 20130711
  Transmission Date: 20140515
  Serious: Yes (Other)
  Sender: FDA-Public Use
  Company Number: US-CELGENEUS-163-20785-13070748

PATIENT
  Age: 70 Year
  Sex: Female

DRUGS (2)
  1. REVLIMID [Suspect]
     Indication: PLASMA CELL MYELOMA
     Route: 048
  2. THALOMID [Suspect]
     Indication: PLASMA CELL MYELOMA
     Route: 048

REACTIONS (3)
  - Acute myeloid leukaemia [Recovering/Resolving]
  - Neutropenia [Unknown]
  - Thrombocytopenia [Unknown]
